FAERS Safety Report 4589648-1 (Version None)
Quarter: 2005Q1

REPORT INFORMATION
  Report Type: 
  Country: None (occurrence: None)
  Receive Date: 20050223
  Receipt Date: 20041021
  Transmission Date: 20050727
  Serious: Yes (Hospitalization)
  Sender: FDA-Public Use
  Company Number: FR-ROCHE-384124

PATIENT
  Age: 14 Year
  Sex: Male
  Weight: 57 kg

DRUGS (2)
  1. ROACCUTANE [Suspect]
     Indication: ACNE
     Route: 048
     Dates: start: 20040901
  2. ROACCUTANE [Suspect]
     Route: 048
     Dates: end: 20041015

REACTIONS (2)
  - ACUTE ABDOMEN [None]
  - CHOLECYSTITIS ACUTE [None]
